FAERS Safety Report 4382006-4 (Version None)
Quarter: 2004Q2

REPORT INFORMATION
  Report Type: 
  Country: None (occurrence: None)
  Receive Date: 20040615
  Receipt Date: 20040604
  Transmission Date: 20050107
  Serious: Yes (Hospitalization)
  Sender: FDA-Public Use
  Company Number: F01200401309

PATIENT
  Age: 69 Year
  Sex: Male

DRUGS (2)
  1. (OXALIPLATIN ) - SOLUTION - 130 MG/M2 [Suspect]
     Indication: COLORECTAL CANCER METASTATIC
     Dosage: 187 MG Q3W, INTRAVENOUS NOS
     Route: 042
  2. (CAPECITABINE) - TABLET - 1000 MG/M2 [Suspect]
     Dosage: 1500 MG (1000 MG/M2 TWICE DAILY FOR 2 WEEKS, Q3W), ORAL
     Route: 048

REACTIONS (4)
  - BLOOD POTASSIUM DECREASED [None]
  - DEHYDRATION [None]
  - DIARRHOEA [None]
  - HYPOVOLAEMIC SHOCK [None]
